FAERS Safety Report 25232728 (Version 1)
Quarter: 2025Q2

REPORT INFORMATION
  Report Type: Spontaneous
  Country: US (occurrence: US)
  Receive Date: 20250424
  Receipt Date: 20250424
  Transmission Date: 20250717
  Serious: Yes (Hospitalization, Other)
  Sender: ENDO
  Company Number: US-ENDO USA, INC.-2025-001079

PATIENT
  Age: 27 Year
  Sex: Male

DRUGS (1)
  1. KETALAR [Suspect]
     Active Substance: KETAMINE HYDROCHLORIDE
     Indication: Substance use
     Route: 065

REACTIONS (7)
  - Sepsis [Unknown]
  - Liver abscess [Recovering/Resolving]
  - Pyelonephritis [Unknown]
  - Cholestatic liver injury [Unknown]
  - Urinary tract disorder [Unknown]
  - Hydronephrosis [Unknown]
  - Drug abuse [Unknown]
